FAERS Safety Report 13194996 (Version 1)
Quarter: 2017Q1

REPORT INFORMATION
  Report Type: Spontaneous
  Country: None (occurrence: GB)
  Receive Date: 20170207
  Receipt Date: 20170207
  Transmission Date: 20170428
  Serious: Yes (Other)
  Sender: FDA-Public Use
  Company Number: GB-XIROMED, LLC-1062860

PATIENT
  Age: 61 Year
  Sex: Female
  Weight: 75 kg

DRUGS (5)
  1. LANSOPRAZOLE. [Suspect]
     Active Substance: LANSOPRAZOLE
     Dates: start: 20161124
  2. BECONASE AQ [Concomitant]
     Active Substance: BECLOMETHASONE DIPROPIONATE MONOHYDRATE
     Dates: start: 20150430
  3. FLUOXETINE [Concomitant]
     Active Substance: FLUOXETINE HYDROCHLORIDE
     Dates: start: 20160107
  4. NAPROXEN. [Concomitant]
     Active Substance: NAPROXEN
     Dates: start: 20161104, end: 20161202
  5. ZAPAIN [Concomitant]
     Active Substance: ACETAMINOPHEN\CODEINE PHOSPHATE
     Dates: start: 20160107

REACTIONS (1)
  - Glossodynia [Recovered/Resolved]

NARRATIVE: CASE EVENT DATE: 20161215
